FAERS Safety Report 4619965-8 (Version None)
Quarter: 2005Q1

REPORT INFORMATION
  Report Type: 
  Country: None (occurrence: None)
  Receive Date: 20050328
  Receipt Date: 20050111
  Transmission Date: 20050727
  Serious: Yes (Hospitalization)
  Sender: FDA-Public Use
  Company Number: FR-ABBOTT-05P-056-0286406-03

PATIENT
  Sex: Female
  Weight: 52 kg

DRUGS (7)
  1. HUMIRA [Suspect]
     Indication: RHEUMATOID ARTHRITIS
     Dosage: 40 MG
     Route: 058
     Dates: start: 20001026, end: 20041230
  2. AMPHOTERICIN B [Concomitant]
     Indication: ANTIFUNGAL PROPHYLAXIS
     Route: 048
     Dates: start: 20040101
  3. ACETYLSALICYLATE LYSINE [Concomitant]
     Indication: THROMBOSIS PROPHYLAXIS
     Route: 048
     Dates: start: 20040901
  4. NIMESULIDE [Concomitant]
     Indication: RHEUMATOID ARTHRITIS
     Route: 048
     Dates: start: 20041214
  5. PANTOPRAZOLE [Concomitant]
     Indication: PROPHYLAXIS AGAINST GASTROINTESTINAL ULCER
     Route: 048
     Dates: start: 20041214
  6. BISELECT [Concomitant]
     Indication: HYPERTENSION
     Route: 048
     Dates: start: 20030705
  7. LEVOTHYROXINE SODIUM [Concomitant]
     Indication: HYPOTHYROIDISM
     Route: 048
     Dates: start: 20030705

REACTIONS (24)
  - ABNORMAL BEHAVIOUR [None]
  - ARRHYTHMIA [None]
  - ATRIAL FIBRILLATION [None]
  - BETA HAEMOLYTIC STREPTOCOCCAL INFECTION [None]
  - BLOOD ANTIDIURETIC HORMONE DECREASED [None]
  - BRONCHITIS [None]
  - CERUMEN IMPACTION [None]
  - CHORIOMENINGITIS LYMPHOCYTIC [None]
  - DEAFNESS [None]
  - DYSPHONIA [None]
  - ESCHERICHIA INFECTION [None]
  - GENERAL PHYSICAL HEALTH DETERIORATION [None]
  - HAEMATURIA [None]
  - HYPERTROPHIC CARDIOMYOPATHY [None]
  - HYPONATRAEMIA [None]
  - MENINGITIS TUBERCULOUS [None]
  - ORAL FUNGAL INFECTION [None]
  - POSTNASAL DRIP [None]
  - PYREXIA [None]
  - PYURIA [None]
  - SPUTUM CULTURE POSITIVE [None]
  - STAPHYLOCOCCAL INFECTION [None]
  - TROPONIN T INCREASED [None]
  - URINARY TRACT INFECTION [None]
